FAERS Safety Report 20711723 (Version 5)
Quarter: 2023Q1

REPORT INFORMATION
  Report Type: Report from Study
  Country: CA (occurrence: None)
  Receive Date: 20220414
  Receipt Date: 20230127
  Transmission Date: 20230417
  Serious: Yes (Other)
  Sender: FDA-Public Use
  Company Number: CA-ROCHE-3073154

PATIENT
  Age: 51 Year
  Sex: Female
  Weight: 57.7 kg

DRUGS (16)
  1. OCRELIZUMAB [Suspect]
     Active Substance: OCRELIZUMAB
     Indication: Relapsing-remitting multiple sclerosis
     Dosage: ON 19/JAN/2022, SHE RECEIVED MOST RECENT DOSE (600) OF OCRELIZUMAB PRIOR TO EVENT ONSET.?300-MILLIGR
     Route: 042
     Dates: start: 20190314
  2. METHYLPREDNISOLONE [Suspect]
     Active Substance: METHYLPREDNISOLONE
     Indication: Premedication
     Dosage: LAST DOSE OF METHYLPREDNISOLONE ADMINISTERED PRIOR TO THIS EVENT WAS 100 MG?SUBSEQUENT DOSES WERE RE
     Route: 042
     Dates: start: 20190314
  3. ATIVAN [Concomitant]
     Active Substance: LORAZEPAM
     Route: 048
     Dates: start: 20190305, end: 20190305
  4. ATIVAN [Concomitant]
     Active Substance: LORAZEPAM
     Route: 048
     Dates: start: 20190510, end: 20190510
  5. ATIVAN [Concomitant]
     Active Substance: LORAZEPAM
     Route: 048
     Dates: start: 20190814, end: 20190814
  6. ATIVAN [Concomitant]
     Active Substance: LORAZEPAM
     Route: 048
     Dates: start: 20200203, end: 20200203
  7. ATIVAN [Concomitant]
     Active Substance: LORAZEPAM
     Route: 048
     Dates: start: 20210106, end: 20210106
  8. BENADRYL [Concomitant]
     Active Substance: DIPHENHYDRAMINE HYDROCHLORIDE
     Route: 048
     Dates: start: 20190828, end: 20190828
  9. BENADRYL [Concomitant]
     Active Substance: DIPHENHYDRAMINE HYDROCHLORIDE
     Route: 048
     Dates: start: 20190509
  10. CIPRALEX [Concomitant]
     Active Substance: ESCITALOPRAM OXALATE
     Route: 048
     Dates: start: 20210317
  11. OMEGA 3 [Concomitant]
     Active Substance: CAPSAICIN
     Route: 048
     Dates: start: 20190107
  12. RIZATRIPTAN [Concomitant]
     Active Substance: RIZATRIPTAN
     Route: 048
  13. DIPHENHYDRAMINE [Concomitant]
     Active Substance: DIPHENHYDRAMINE
     Indication: Premedication
     Dosage: SUBSEQUENT DOSES WERE RECEIVED ON:28/MAR/2019, 28/AUG/2019, 17/FEB/2020, 04/AUG/2020, 20/JAN/2021, 2
     Route: 048
     Dates: start: 20190314, end: 20190314
  14. ACETAMINOPHEN [Concomitant]
     Active Substance: ACETAMINOPHEN
     Indication: Premedication
     Dosage: SUBSEQUENT DOSES WERE RECEIVED ON:28/MAR/2019, 28/AUG/2019, 17/FEB/2020, 04/AUG/2020, 20/JAN/2021, 2
     Route: 048
     Dates: start: 20190314, end: 20190314
  15. TAXOL [Concomitant]
     Active Substance: PACLITAXEL
     Dates: start: 20220513, end: 20220926
  16. HERCEPTIN [Concomitant]
     Active Substance: TRASTUZUMAB
     Route: 065
     Dates: start: 20220513, end: 20220926

REACTIONS (1)
  - Invasive ductal breast carcinoma [Not Recovered/Not Resolved]

NARRATIVE: CASE EVENT DATE: 20220310
